FAERS Safety Report 7392728-9 (Version None)
Quarter: 2011Q2

REPORT INFORMATION
  Report Type: 
  Country: None (occurrence: None)
  Receive Date: 20110404
  Receipt Date: 20110324
  Transmission Date: 20111010
  Serious: Yes (Other)
  Sender: FDA-Public Use
  Company Number: US-ASTRAZENECA-2011SE16845

PATIENT
  Sex: Female

DRUGS (6)
  1. CITALOPRAM [Concomitant]
  2. AMITRIPTYLINE [Concomitant]
  3. XANAX [Concomitant]
  4. GABAPENTIN [Concomitant]
  5. SEROQUEL XR [Suspect]
     Indication: BIPOLAR DISORDER
     Route: 048
  6. PRISTIQ [Concomitant]

REACTIONS (3)
  - EXPOSURE TO TOXIC AGENT [None]
  - SUBSTANCE ABUSER [None]
  - COLLAPSE OF LUNG [None]
